FAERS Safety Report 19305881 (Version 1)
Quarter: 2021Q2

REPORT INFORMATION
  Report Type: Spontaneous
  Country: US (occurrence: US)
  Receive Date: 20210525
  Receipt Date: 20210525
  Transmission Date: 20210717
  Serious: No
  Sender: FDA-Public Use
  Company Number: US-INTERSECT ENT, INC.-2111962

PATIENT
  Age: 41 Year
  Sex: Male

DRUGS (1)
  1. SINUVA [Suspect]
     Active Substance: MOMETASONE FUROATE
     Route: 006
     Dates: start: 20201023

REACTIONS (2)
  - Nasal obstruction [Recovered/Resolved]
  - Incorrect product administration duration [Unknown]
